FAERS Safety Report 4407725-2 (Version None)
Quarter: 2004Q3

REPORT INFORMATION
  Report Type: 
  Country: None (occurrence: None)
  Receive Date: 20040721
  Receipt Date: 20040712
  Transmission Date: 20050211
  Serious: Yes (Hospitalization)
  Sender: FDA-Public Use
  Company Number: US-JNJFOC-20040704144

PATIENT
  Age: 34 Year
  Sex: Female
  Weight: 88.4514 kg

DRUGS (3)
  1. ORTHO EVRA [Suspect]
     Indication: CONTRACEPTION
     Dosage: 1 DOSE(S), 3 IN 4 WEEK,TRANSDERMAL
     Route: 062
     Dates: start: 20040615
  2. TOPAMAX [Concomitant]
  3. PROVENTIL [Concomitant]

REACTIONS (1)
  - GRAND MAL CONVULSION [None]
